FAERS Safety Report 13388916 (Version 3)
Quarter: 2017Q4

REPORT INFORMATION
  Report Type: Report from Study
  Country: AU (occurrence: AU)
  Receive Date: 20170330
  Receipt Date: 20171026
  Transmission Date: 20180320
  Serious: Yes (Other)
  Sender: FDA-Public Use
  Company Number: AU-REGENERON PHARMACEUTICALS, INC.-2017-13854

PATIENT

DRUGS (2)
  1. EYLEA [Suspect]
     Active Substance: AFLIBERCEPT
     Indication: DIABETIC RETINAL OEDEMA
     Dosage: ONCE A MONTH INTO LEFT EYE
     Route: 031
     Dates: start: 20161101
  2. INSULIN [Concomitant]
     Active Substance: INSULIN NOS
     Indication: TYPE 2 DIABETES MELLITUS

REACTIONS (6)
  - Retinal vascular disorder [Not Recovered/Not Resolved]
  - Postoperative wound infection [Unknown]
  - Diabetes mellitus inadequate control [Not Recovered/Not Resolved]
  - Procedural anxiety [Recovered/Resolved]
  - Agitation [Not Recovered/Not Resolved]
  - Skin neoplasm excision [Not Recovered/Not Resolved]

NARRATIVE: CASE EVENT DATE: 201706
